FAERS Safety Report 8543254-2 (Version None)
Quarter: 2012Q3

REPORT INFORMATION
  Report Type: 
  Country: None (occurrence: None)
  Receive Date: 20120727
  Receipt Date: 20120427
  Transmission Date: 20120928
  Serious: No
  Sender: FDA-Public Use
  Company Number: US-MYLANLABS-2012S1008906

PATIENT
  Sex: Male

DRUGS (1)
  1. MIRTAZAPINE [Suspect]
     Indication: ANXIETY
     Dosage: FOR 2 NIGHTS ONLY
     Route: 048
     Dates: start: 20120423, end: 20120424

REACTIONS (3)
  - FEELING ABNORMAL [None]
  - SOMNOLENCE [None]
  - CONSTIPATION [None]
